FAERS Safety Report 9259493 (Version 6)
Quarter: 2016Q1

REPORT INFORMATION
  Report Type: Spontaneous
  Country: US (occurrence: US)
  Receive Date: 20130428
  Receipt Date: 20160324
  Transmission Date: 20160526
  Serious: Yes (Hospitalization, Disabling, Other)
  Sender: FDA-Public Use
  Company Number: US-009507513-1304USA014374

PATIENT
  Sex: Female

DRUGS (3)
  1. RISPERDAL [Suspect]
     Active Substance: RISPERIDONE
     Route: 065
  2. REMERON [Suspect]
     Active Substance: MIRTAZAPINE
     Indication: SCHIZOPHRENIA
     Dosage: UNK
     Route: 048
     Dates: start: 201204
  3. ABILIFY [Suspect]
     Active Substance: ARIPIPRAZOLE
     Route: 065

REACTIONS (13)
  - Major depression [Recovering/Resolving]
  - Headache [Unknown]
  - Vision blurred [Not Recovered/Not Resolved]
  - Hydrocephalus [Recovered/Resolved]
  - Breast enlargement [Unknown]
  - Weight increased [Not Recovered/Not Resolved]
  - Blindness [Not Recovered/Not Resolved]
  - Papilloedema [Unknown]
  - Ocular hypertension [Unknown]
  - Nausea [Unknown]
  - Balance disorder [Unknown]
  - Benign neoplasm of eye [Not Recovered/Not Resolved]
  - Ventricular drainage [Recovered/Resolved]

NARRATIVE: CASE EVENT DATE: 201206
